FAERS Safety Report 7249676-4 (Version None)
Quarter: 2011Q1

REPORT INFORMATION
  Report Type: 
  Country: None (occurrence: None)
  Receive Date: 20110128
  Receipt Date: 20110114
  Transmission Date: 20110831
  Serious: Yes (Other)
  Sender: FDA-Public Use
  Company Number: US-SANOFI-AVENTIS-2011SA003255

PATIENT
  Sex: Female

DRUGS (5)
  1. MULTAQ [Suspect]
     Indication: ATRIAL FIBRILLATION
     Route: 048
     Dates: start: 20101201
  2. DYAZIDE [Concomitant]
  3. DILTIAZEM [Concomitant]
  4. DABIGATRAN ETEXILATE [Suspect]
     Indication: ATRIAL FIBRILLATION
     Route: 065
     Dates: start: 20101201, end: 20101201
  5. PRAVACHOL [Concomitant]

REACTIONS (2)
  - INTRA-ABDOMINAL HAEMORRHAGE [None]
  - GASTROINTESTINAL HAEMORRHAGE [None]
